FAERS Safety Report 8694981 (Version 2)
Quarter: 2013Q4

REPORT INFORMATION
  Report Type: Spontaneous
  Country: FR (occurrence: FR)
  Receive Date: 20120731
  Receipt Date: 20131105
  Transmission Date: 20140711
  Serious: Yes (Hospitalization)
  Sender: FDA-Public Use
  Company Number: FR-MSD-1207FRA012448

PATIENT
  Age: 20 Year
  Sex: Female

DRUGS (4)
  1. TIENAM 500MG/500MG, POUDRE POUR PERFUSION [Suspect]
     Indication: STAPHYLOCOCCAL INFECTION
     Dosage: UNK
     Route: 042
     Dates: start: 20120626
  2. CLAFORAN [Suspect]
     Dosage: UNK
     Route: 042
     Dates: start: 20120621, end: 20120626
  3. VANCOMYCIN [Suspect]
     Dosage: UNK
     Route: 042
     Dates: start: 20120621
  4. GENTAMICINE [Suspect]
     Dosage: 1 DF, TID
     Route: 042
     Dates: start: 20120621

REACTIONS (1)
  - Liver injury [Unknown]
